FAERS Safety Report 12608712 (Version 1)
Quarter: 2016Q3

REPORT INFORMATION
  Report Type: Spontaneous
  Country: US (occurrence: US)
  Receive Date: 20160729
  Receipt Date: 20160729
  Transmission Date: 20161109
  Serious: Yes (Other)
  Sender: FDA-Public Use
  Company Number: US-ASTRAZENECA-2016SE80614

PATIENT
  Sex: Female

DRUGS (6)
  1. ACETAMINOPHEN-CODEINE [Concomitant]
     Active Substance: ACETAMINOPHEN\CODEINE PHOSPHATE
     Dosage: 300-30 MG 1 DF, EVERY 4 HOURS AS NEEDED
     Route: 048
  2. ANASTROZOLE. [Suspect]
     Active Substance: ANASTROZOLE
     Indication: BREAST CANCER FEMALE
     Route: 048
  3. LIPITOR [Suspect]
     Active Substance: ATORVASTATIN CALCIUM
     Route: 048
  4. ENALAPRIL- HYDROCHLOROTHIAZIDE [Concomitant]
     Dosage: 10-25MG 1 DF, DAILY
     Route: 048
  5. AROMASIN [Suspect]
     Active Substance: EXEMESTANE
     Route: 048
  6. FELDENE [Suspect]
     Active Substance: PIROXICAM
     Route: 048

REACTIONS (5)
  - Hypertension [Unknown]
  - Arthralgia [Unknown]
  - Breast pain [Unknown]
  - Osteoarthritis [Unknown]
  - Axillary pain [Unknown]
